FAERS Safety Report 19420087 (Version 1)
Quarter: 2021Q2

REPORT INFORMATION
  Report Type: Report from Study
  Country: GT (occurrence: GT)
  Receive Date: 20210615
  Receipt Date: 20210615
  Transmission Date: 20210717
  Serious: Yes (Other)
  Sender: FDA-Public Use
  Company Number: NVSC2021GT128764

PATIENT
  Age: 62 Year
  Sex: Female

DRUGS (1)
  1. CO?DIOVAN [Suspect]
     Active Substance: HYDROCHLOROTHIAZIDE\VALSARTAN
     Indication: PRODUCT USED FOR UNKNOWN INDICATION
     Dosage: 1 DF (320/25 MG), (STARTED 2 YEARS)
     Route: 048

REACTIONS (4)
  - Diabetes mellitus [Unknown]
  - Mood altered [Unknown]
  - Hypertension [Unknown]
  - Illness [Unknown]
